FAERS Safety Report 20560352 (Version 1)
Quarter: 2022Q1

REPORT INFORMATION
  Report Type: Spontaneous
  Country: US (occurrence: None)
  Receive Date: 20220304
  Receipt Date: 20220304
  Transmission Date: 20220423
  Serious: Yes (Life-Threatening, Disabling, Other)
  Sender: FDA-Public Use
  Company Number: None

PATIENT
  Age: 45 Year
  Sex: Female
  Weight: 48.6 kg

DRUGS (2)
  1. CEPHALEXIN [Suspect]
     Active Substance: CEPHALEXIN
     Indication: Helicobacter infection
     Dosage: OTHER QUANTITY : 1 TABLET(S);?FREQUENCY : EVERY 12 HOURS;?
     Route: 048
     Dates: start: 20220205, end: 20220211
  2. DIAZEPAM [Concomitant]
     Active Substance: DIAZEPAM

REACTIONS (17)
  - Psychomotor hyperactivity [None]
  - Paraesthesia [None]
  - Heart rate increased [None]
  - Brain oedema [None]
  - Headache [None]
  - Diplopia [None]
  - Confusional state [None]
  - Arthralgia [None]
  - Chest pain [None]
  - Neck pain [None]
  - Pain in extremity [None]
  - Oral discomfort [None]
  - Swollen tongue [None]
  - Tongue haemorrhage [None]
  - Myalgia [None]
  - Heart rate irregular [None]
  - Anaphylactic reaction [None]

NARRATIVE: CASE EVENT DATE: 20220205
